FAERS Safety Report 8226812-4 (Version None)
Quarter: 2012Q1

REPORT INFORMATION
  Report Type: 
  Country: None (occurrence: None)
  Receive Date: 20120322
  Receipt Date: 20120319
  Transmission Date: 20120608
  Serious: Yes (Other)
  Sender: FDA-Public Use
  Company Number: IT-BAYER-2012-026980

PATIENT
  Age: 62 Year
  Sex: Male

DRUGS (2)
  1. NSAID'S [Concomitant]
     Dosage: UNK
     Dates: start: 20111001
  2. ASPIRIN [Suspect]
     Indication: PLATELET AGGREGATION INHIBITION
     Dosage: 100 MG, QD
     Route: 048
     Dates: start: 20080101, end: 20111108

REACTIONS (2)
  - SYNCOPE [None]
  - MELAENA [None]
